FAERS Safety Report 11426059 (Version 1)
Quarter: 2015Q3

REPORT INFORMATION
  Report Type: Spontaneous
  Country: US (occurrence: US)
  Receive Date: 20150821
  Receipt Date: 20150821
  Transmission Date: 20151125
  Serious: No
  Sender: FDA-Public Use
  Company Number: US-ELI_LILLY_AND_COMPANY-US201208008690

PATIENT
  Age: 40 Year
  Sex: Male
  Weight: 89.8 kg

DRUGS (2)
  1. CIALIS [Suspect]
     Active Substance: TADALAFIL
     Indication: ERECTILE DYSFUNCTION
     Dosage: 5 MG, QD
     Route: 048
     Dates: start: 20120701, end: 20120703
  2. CIALIS [Suspect]
     Active Substance: TADALAFIL
     Dosage: 1 DF, UNKNOWN
     Route: 048

REACTIONS (3)
  - Sleep disorder [Not Recovered/Not Resolved]
  - Wrong technique in product usage process [Unknown]
  - Arthralgia [Not Recovered/Not Resolved]

NARRATIVE: CASE EVENT DATE: 20120703
